FAERS Safety Report 24311455 (Version 1)
Quarter: 2024Q3

REPORT INFORMATION
  Report Type: Spontaneous
  Country: CZ (occurrence: CZ)
  Receive Date: 20240912
  Receipt Date: 20240912
  Transmission Date: 20241017
  Serious: Yes (Disabling, Other)
  Sender: ACCORD
  Company Number: CZ-Accord-020042

PATIENT
  Age: 65 Year
  Sex: Male

DRUGS (8)
  1. DOCETAXEL [Suspect]
     Active Substance: DOCETAXEL\DOCETAXEL ANHYDROUS
     Indication: Chemotherapy
     Dosage: 75 MG/M2, CYCLIC (EIGHT CYCLES), IN THREE WEEKS INTERVAL
     Dates: start: 201203
  2. AMITRIPTYLINE [Suspect]
     Active Substance: AMITRIPTYLINE
     Indication: Neuralgia
     Dosage: AT NIGHT
  3. GABAPENTIN [Suspect]
     Active Substance: GABAPENTIN
     Indication: Neuralgia
     Dosage: 600 MG, TID
  4. PREDNISONE [Suspect]
     Active Substance: PREDNISONE
     Indication: Metastases to bone
     Dosage: 5 MG, 2 DAY INTERVAL: 1 ,5 MG, 2*/DAY)
  5. CYPROTERONE ACETATE [Concomitant]
     Active Substance: CYPROTERONE ACETATE
     Indication: Prostate cancer
     Dates: start: 201203
  6. FENTANYL [Concomitant]
     Active Substance: FENTANYL\FENTANYL CITRATE
     Indication: Neuropathy peripheral
     Dosage: 25 DOSAGE FORM, 25 UG/HR CHANGED ONCE IN 3 DAYS
     Route: 062
  7. LEUPROLIDE ACETATE [Concomitant]
     Active Substance: ISOPROPYL ALCOHOL\LEUPROLIDE ACETATE
     Indication: Prostate cancer
     Dates: end: 201203
  8. GABAPENTIN [Suspect]
     Active Substance: GABAPENTIN
     Indication: Neuralgia
     Dosage: INCREASED TO 600MG 3* DAILY

REACTIONS (12)
  - Neuropathy peripheral [Recovered/Resolved]
  - Visual impairment [Unknown]
  - Pain in extremity [Recovered/Resolved]
  - Thermohyperaesthesia [Recovering/Resolving]
  - Quality of life decreased [Recovered/Resolved]
  - Orthostatic hypotension [Recovered/Resolved]
  - Burning sensation [Recovered/Resolved]
  - Depression [Recovered/Resolved]
  - Muscular weakness [Recovered/Resolved]
  - Gastrointestinal disorder [Recovered/Resolved]
  - Hypertension [Recovered/Resolved]
  - Paraesthesia [Recovering/Resolving]
